FAERS Safety Report 7263164-0 (Version None)
Quarter: 2011Q1

REPORT INFORMATION
  Report Type: 
  Country: None (occurrence: None)
  Receive Date: 20110130
  Receipt Date: 20101012
  Transmission Date: 20110831
  Serious: No
  Sender: FDA-Public Use
  Company Number: US-ABBOTT-10P-163-0677794-00

PATIENT
  Age: 68 Year
  Sex: Female

DRUGS (17)
  1. VIOTIN [Concomitant]
     Indication: ALOPECIA
  2. HUMIRA [Suspect]
     Indication: PSORIATIC ARTHROPATHY
     Dates: start: 20100630
  3. SYNTHROID [Concomitant]
     Indication: HYPOTHYROIDISM
  4. FISH OIL [Concomitant]
     Indication: PRODUCT USED FOR UNKNOWN INDICATION
  5. CLONIDINE [Concomitant]
     Indication: HYPERTENSION
  6. PROVIGIL [Concomitant]
     Indication: HYPERSOMNIA
  7. SERZONE [Concomitant]
     Indication: MIGRAINE
  8. ULTRAM [Concomitant]
     Indication: BREAKTHROUGH PAIN
  9. LOVAZA [Concomitant]
     Indication: PRODUCT USED FOR UNKNOWN INDICATION
  10. FOLIC ACID [Concomitant]
     Indication: ALOPECIA
  11. ASCORBIC ACID [Concomitant]
     Indication: ALOPECIA
  12. LEVABID [Concomitant]
     Indication: URINARY INCONTINENCE
  13. ISONIAZID [Concomitant]
     Indication: HAEMOLYTIC ANAEMIA
     Dosage: 40MG/0.8ML
     Route: 058
  14. POTASSIUM CHLORIDE [Concomitant]
     Indication: MINERAL SUPPLEMENTATION
  15. ALLEGRA [Concomitant]
     Indication: HYPERSENSITIVITY
  16. MOBIC [Concomitant]
     Indication: INFLAMMATION
  17. METHADONE [Concomitant]
     Indication: BREAKTHROUGH PAIN

REACTIONS (1)
  - INJECTION SITE PAIN [None]
